FAERS Safety Report 17254873 (Version 1)
Quarter: 2020Q1

REPORT INFORMATION
  Report Type: Spontaneous
  Country: GB (occurrence: GB)
  Receive Date: 20200109
  Receipt Date: 20200109
  Transmission Date: 20200409
  Serious: Yes (Other)
  Sender: FDA-Public Use
  Company Number: ALC2020GB000470

PATIENT

DRUGS (1)
  1. ATROPINE. [Suspect]
     Active Substance: ATROPINE
     Indication: PRODUCT USED FOR UNKNOWN INDICATION
     Dosage: UNK
     Route: 050
     Dates: start: 20190524

REACTIONS (2)
  - Incorrect route of product administration [Unknown]
  - Vision blurred [Unknown]
